FAERS Safety Report 18433974 (Version 1)
Quarter: 2020Q4

REPORT INFORMATION
  Report Type: Spontaneous
  Country: US (occurrence: US)
  Receive Date: 20201028
  Receipt Date: 20201028
  Transmission Date: 20210114
  Serious: No
  Sender: FDA-Public Use
  Company Number: US-AMGEN-USASP2020172843

PATIENT
  Age: 86 Year
  Sex: Female

DRUGS (1)
  1. PROLIA [Suspect]
     Active Substance: DENOSUMAB
     Indication: OSTEOPOROSIS POSTMENOPAUSAL
     Dosage: UNK
     Route: 065
     Dates: start: 20200901

REACTIONS (6)
  - Rash macular [Recovering/Resolving]
  - Nausea [Unknown]
  - Rash pruritic [Recovering/Resolving]
  - Oral disorder [Unknown]
  - Blister [Recovering/Resolving]
  - Lip disorder [Unknown]

NARRATIVE: CASE EVENT DATE: 2020
